FAERS Safety Report 5091482-3 (Version None)
Quarter: 2006Q3

REPORT INFORMATION
  Report Type: 
  Country: None (occurrence: None)
  Receive Date: 20060829
  Receipt Date: 20060824
  Transmission Date: 20061208
  Serious: Yes (Hospitalization, Other)
  Sender: FDA-Public Use
  Company Number: CH-GLAXOSMITHKLINE-B0435753A

PATIENT
  Age: 26 Year
  Sex: Female

DRUGS (4)
  1. ZYBAN [Suspect]
     Indication: TOBACCO ABUSE
     Dosage: 150MG UNKNOWN
     Route: 048
     Dates: start: 20060617, end: 20060617
  2. NISULID [Concomitant]
     Indication: DRUG USE FOR UNKNOWN INDICATION
     Route: 048
     Dates: start: 20060617, end: 20060617
  3. NEXIUM [Concomitant]
     Indication: DRUG USE FOR UNKNOWN INDICATION
     Route: 048
     Dates: start: 20060617, end: 20060617
  4. CONTRACEPTIVE PILL [Concomitant]
     Indication: CONTRACEPTION
     Route: 065

REACTIONS (6)
  - DEPRESSED MOOD [None]
  - DRUG TOXICITY [None]
  - GRAND MAL CONVULSION [None]
  - OVERDOSE [None]
  - SOMNOLENCE [None]
  - SUICIDE ATTEMPT [None]
